FAERS Safety Report 6202179-8 (Version None)
Quarter: 2009Q2

REPORT INFORMATION
  Report Type: 
  Country: None (occurrence: None)
  Receive Date: 20090520
  Receipt Date: 20090506
  Transmission Date: 20091009
  Serious: Yes (Hospitalization)
  Sender: FDA-Public Use
  Company Number: 230224M09USA

PATIENT
  Age: 50 Year
  Sex: Female

DRUGS (17)
  1. REBIF [Suspect]
     Indication: MULTIPLE SCLEROSIS
     Dosage: 24 MCG, 3 IN 1 WEEKS
  2. TRAZODONE HCL [Concomitant]
  3. POTASSIUM (POTASSIUM /00031401/) [Concomitant]
  4. SINGULAIR (MONTELUKAST /01362601/) [Concomitant]
  5. DETROL LA [Concomitant]
  6. LEXAPRO [Concomitant]
  7. MUCINEX [Concomitant]
  8. NEURONTIN [Concomitant]
  9. BACLOFEN [Concomitant]
  10. NAPROXEN [Concomitant]
  11. LASIX (FUROSEMIDE /00032601/) [Concomitant]
  12. FOSAMAX [Concomitant]
  13. PERCOCET [Concomitant]
  14. COLLACE (DOCUSATE SODIUM) [Concomitant]
  15. MULTIVITAMIN (MULTIVITAMIN /00831701/) [Concomitant]
  16. DUONEB [Concomitant]
  17. SENOKOT (SENNA ALEXANDRINA) [Concomitant]

REACTIONS (8)
  - BETA HAEMOLYTIC STREPTOCOCCAL INFECTION [None]
  - BLOOD URINE PRESENT [None]
  - CHEST PAIN [None]
  - CHRONIC OBSTRUCTIVE PULMONARY DISEASE [None]
  - CONDITION AGGRAVATED [None]
  - LEFT VENTRICULAR HYPERTROPHY [None]
  - PULMONARY FIBROSIS [None]
  - URINARY TRACT INFECTION [None]
